FAERS Safety Report 18856631 (Version 62)
Quarter: 2025Q2

REPORT INFORMATION
  Report Type: Report from Study
  Country: CO (occurrence: CO)
  Receive Date: 20210207
  Receipt Date: 20250512
  Transmission Date: 20250717
  Serious: Yes (Other)
  Sender: TAKEDA
  Company Number: CO-TAKEDA-CO201945180

PATIENT
  Age: 27 Year
  Sex: Female
  Weight: 78 kg

DRUGS (21)
  1. ICATIBANT [Suspect]
     Active Substance: ICATIBANT ACETATE
     Indication: Hereditary angioedema
  2. ICATIBANT [Suspect]
     Active Substance: ICATIBANT ACETATE
     Dates: start: 20191225, end: 20191225
  3. ICATIBANT [Suspect]
     Active Substance: ICATIBANT ACETATE
     Dates: start: 20200401, end: 20200401
  4. ICATIBANT [Suspect]
     Active Substance: ICATIBANT ACETATE
     Dates: start: 20200811, end: 20200811
  5. ICATIBANT [Suspect]
     Active Substance: ICATIBANT ACETATE
  6. ICATIBANT [Suspect]
     Active Substance: ICATIBANT ACETATE
  7. ICATIBANT [Suspect]
     Active Substance: ICATIBANT ACETATE
  8. ICATIBANT [Suspect]
     Active Substance: ICATIBANT ACETATE
  9. ICATIBANT [Suspect]
     Active Substance: ICATIBANT ACETATE
     Dosage: UNK UNK, Q6HR
  10. ICATIBANT [Suspect]
     Active Substance: ICATIBANT ACETATE
     Dosage: 3 DOSAGE FORM, Q6HR
  11. ICATIBANT [Suspect]
     Active Substance: ICATIBANT ACETATE
     Dosage: 30 MILLIGRAM, Q6HR
  12. ICATIBANT [Suspect]
     Active Substance: ICATIBANT ACETATE
     Dosage: 3 DOSAGE FORM, Q6HR
  13. ICATIBANT [Suspect]
     Active Substance: ICATIBANT ACETATE
  14. ICATIBANT [Suspect]
     Active Substance: ICATIBANT ACETATE
  15. TAKHZYRO [Suspect]
     Active Substance: LANADELUMAB-FLYO
     Indication: Hereditary angioedema
     Dosage: UNK UNK, 2/MONTH
  16. TAKHZYRO [Suspect]
     Active Substance: LANADELUMAB-FLYO
  17. TAKHZYRO [Suspect]
     Active Substance: LANADELUMAB-FLYO
     Dosage: 300 MILLIGRAM, Q3WEEKS
  18. TAKHZYRO [Suspect]
     Active Substance: LANADELUMAB-FLYO
     Dosage: UNK UNK, Q4WEEKS
  19. TAKHZYRO [Suspect]
     Active Substance: LANADELUMAB-FLYO
     Dosage: 300 MILLIGRAM, 2/MONTH
     Dates: start: 20230309
  20. TAKHZYRO [Suspect]
     Active Substance: LANADELUMAB-FLYO
     Dosage: 300 MILLIGRAM, MONTHLY
  21. ICATIBANT ACETATE [Concomitant]
     Active Substance: ICATIBANT ACETATE
     Dosage: 3 DOSAGE FORM, TID

REACTIONS (25)
  - Ectopic pregnancy [Recovered/Resolved]
  - Treatment noncompliance [Unknown]
  - Maternal exposure during breast feeding [Unknown]
  - Exposure during pregnancy [Recovered/Resolved]
  - Product dose omission issue [Unknown]
  - Anxiety [Recovered/Resolved]
  - Agitation [Recovered/Resolved]
  - Irritability [Recovered/Resolved]
  - Fatigue [Recovered/Resolved]
  - Dyspnoea [Recovered/Resolved]
  - Feeling abnormal [Recovered/Resolved]
  - Nausea [Recovered/Resolved]
  - Dizziness [Recovered/Resolved]
  - Malaise [Unknown]
  - Anosmia [Unknown]
  - Ageusia [Unknown]
  - Weight decreased [Unknown]
  - Body height increased [Unknown]
  - Weight increased [Unknown]
  - Depression [Unknown]
  - Insurance issue [Unknown]
  - Product prescribing error [Unknown]
  - Wrong dosage formulation [Unknown]
  - Nasal congestion [Unknown]
  - Hereditary angioedema [Recovered/Resolved]

NARRATIVE: CASE EVENT DATE: 20210126
